FAERS Safety Report 7997473-4 (Version None)
Quarter: 2011Q4

REPORT INFORMATION
  Report Type: 
  Country: None (occurrence: None)
  Receive Date: 20111221
  Receipt Date: 20111221
  Transmission Date: 20120403
  Serious: Yes (Hospitalization)
  Sender: FDA-Public Use
  Company Number: None

PATIENT
  Age: 61 Year
  Sex: Female

DRUGS (2)
  1. PEGASYS [Suspect]
     Indication: HEPATITIS C
     Dosage: 180 MCG
     Route: 058
     Dates: start: 20111025, end: 20111122
  2. RIBAVIRIN [Concomitant]
     Dosage: 1000MG/DAY
     Route: 048
     Dates: start: 20111025, end: 20111122

REACTIONS (1)
  - ANAEMIA [None]
